FAERS Safety Report 9844703 (Version 1)
Quarter: 2014Q1

REPORT INFORMATION
  Report Type: Spontaneous
  Country: JP (occurrence: JP)
  Receive Date: 20140127
  Receipt Date: 20140127
  Transmission Date: 20141002
  Serious: Yes (Other)
  Sender: FDA-Public Use
  Company Number: JP-BAYER-2014-009875

PATIENT
  Sex: Female

DRUGS (1)
  1. YAZ [Suspect]
     Indication: DYSMENORRHOEA
     Dosage: UNK
     Route: 048
     Dates: start: 2012

REACTIONS (4)
  - Loss of control of legs [Recovered/Resolved]
  - Palpitations [Recovered/Resolved]
  - Speech disorder [Recovered/Resolved]
  - Amnesia [Recovered/Resolved]
